FAERS Safety Report 6644223-X (Version None)
Quarter: 2010Q1

REPORT INFORMATION
  Report Type: 
  Country: None (occurrence: None)
  Receive Date: 20100317
  Receipt Date: 20100304
  Transmission Date: 20100710
  Serious: Yes (Hospitalization, Other)
  Sender: FDA-Public Use
  Company Number: 1000012045

PATIENT
  Age: 50 Year
  Sex: Male

DRUGS (7)
  1. CITALOPRAM HYDROBROMIDE [Suspect]
     Dosage: 200 MG, ONCE, ORAL
     Route: 048
     Dates: start: 20100215, end: 20100215
  2. SEROQUEL [Suspect]
     Dates: start: 20100215, end: 20100215
  3. OLANZAPINE [Suspect]
     Dates: start: 20100215, end: 20100215
  4. FLUVOXAMINE (TABLETS) [Concomitant]
  5. LORAZEPAM [Concomitant]
  6. PROMETHAZINE (TABLETS) [Concomitant]
  7. OXAZEPAM [Concomitant]

REACTIONS (8)
  - ALCOHOL USE [None]
  - BLOOD CREATINE PHOSPHOKINASE INCREASED [None]
  - BLOOD CREATINE PHOSPHOKINASE MB INCREASED [None]
  - DIZZINESS [None]
  - FALL [None]
  - OVERDOSE [None]
  - SKIN LACERATION [None]
  - SUICIDE ATTEMPT [None]
